FAERS Safety Report 9308503 (Version 1)
Quarter: 2013Q2

REPORT INFORMATION
  Report Type: Spontaneous
  Country: FR (occurrence: JP)
  Receive Date: 20130524
  Receipt Date: 20130524
  Transmission Date: 20140414
  Serious: Yes (Other)
  Sender: FDA-Public Use
  Company Number: JP-FRI-1000045396

PATIENT
  Age: 60 Year
  Sex: Male

DRUGS (13)
  1. MILNACIPRAN [Suspect]
     Indication: MAJOR DEPRESSION
     Dosage: 50-100 MG
     Route: 048
  2. MILNACIPRAN [Suspect]
     Indication: MAJOR DEPRESSION
     Dosage: 130 MG
     Route: 048
  3. MILNACIPRAN [Suspect]
     Dosage: 100 MG
     Route: 048
  4. PAROXETINE [Concomitant]
     Dosage: 20-30 MG
  5. PAROXETINE [Concomitant]
     Dosage: 40 MG
  6. PAROXETINE [Concomitant]
     Dosage: 20 MG
  7. PAROXETINE [Concomitant]
     Dosage: 40 MG
  8. SULPIRIDE [Concomitant]
     Dosage: 200 MG
  9. LITHIUM [Concomitant]
     Dosage: 600-800 MG
  10. NORTRIPTYLINE [Concomitant]
     Dosage: 100 MG
  11. FLUVOXAMINE [Concomitant]
     Dosage: 200 MG
  12. ETIZOLAM [Concomitant]
     Dosage: 4 MG
  13. FLUNITRAZEPAM [Concomitant]
     Dosage: 1 MG

REACTIONS (2)
  - Tardive dyskinesia [Recovering/Resolving]
  - Prescribed overdose [Recovering/Resolving]
